FAERS Safety Report 14579737 (Version 1)
Quarter: 2018Q1

REPORT INFORMATION
  Report Type: Spontaneous
  Country: TR (occurrence: TR)
  Receive Date: 20180227
  Receipt Date: 20180227
  Transmission Date: 20180509
  Serious: Yes (Other)
  Sender: FDA-Public Use
  Company Number: TR-BAXTER-2018BAX005751

PATIENT
  Age: 11 Month
  Sex: Male

DRUGS (14)
  1. BLEOMYCIN [Concomitant]
     Active Substance: BLEOMYCIN SULFATE
     Indication: GERM CELL NEOPLASM
     Route: 065
  2. ETOPOSIDE. [Concomitant]
     Active Substance: ETOPOSIDE
     Indication: GERM CELL NEOPLASM
     Dosage: ICE REGIMEN
     Route: 065
  3. IFOSFAMIDE. [Concomitant]
     Active Substance: IFOSFAMIDE
     Indication: GERM CELL NEOPLASM
  4. UROMITEXAN 400MG/4ML IV ENJ. ICIN COZELTI ICEREN AMPUL [Suspect]
     Active Substance: MESNA
     Indication: RECURRENT CANCER
     Route: 065
  5. ETOPOSIDE. [Concomitant]
     Active Substance: ETOPOSIDE
     Indication: RECURRENT CANCER
     Route: 065
  6. IFOSFAMIDE. [Concomitant]
     Active Substance: IFOSFAMIDE
     Indication: RECURRENT CANCER
     Dosage: ICE REGIMEN
     Route: 065
  7. TOPOTECAN [Suspect]
     Active Substance: TOPOTECAN HYDROCHLORIDE
     Indication: RECURRENT CANCER
     Dosage: CONTINUOUS INFUSION OVER 24 HOURS ON DAYS 2ND AND 3RD.
     Route: 042
  8. CARBOPLATIN. [Concomitant]
     Active Substance: CARBOPLATIN
     Indication: GERM CELL NEOPLASM
  9. CISPLATIN. [Concomitant]
     Active Substance: CISPLATIN
     Indication: GERM CELL NEOPLASM
     Route: 065
  10. CARBOPLATIN. [Concomitant]
     Active Substance: CARBOPLATIN
     Indication: RECURRENT CANCER
     Dosage: ICE REGIMEN
     Route: 065
  11. ENDOXAN 1G IV INFUZ. ICIN TOZ ICEREN FLAKON [Suspect]
     Active Substance: CYCLOPHOSPHAMIDE
     Indication: RECURRENT CANCER
     Dosage: ON DAYS 2ND, 3RD AND 4TH
     Route: 042
  12. ENDOXAN 1G IV INFUZ. ICIN TOZ ICEREN FLAKON [Suspect]
     Active Substance: CYCLOPHOSPHAMIDE
     Indication: GERM CELL NEOPLASM
  13. UROMITEXAN 400MG/4ML IV ENJ. ICIN COZELTI ICEREN AMPUL [Suspect]
     Active Substance: MESNA
     Indication: GERM CELL NEOPLASM
  14. TOPOTECAN [Suspect]
     Active Substance: TOPOTECAN HYDROCHLORIDE
     Indication: GERM CELL NEOPLASM

REACTIONS (1)
  - Septal panniculitis [Recovered/Resolved]
